FAERS Safety Report 15941698 (Version 1)
Quarter: 2019Q1

REPORT INFORMATION
  Report Type: Spontaneous
  Country: US (occurrence: US)
  Receive Date: 20190210
  Receipt Date: 20190210
  Transmission Date: 20190417
  Serious: Yes (Disabling, Other)
  Sender: FDA-Public Use
  Company Number: None

PATIENT
  Age: 63 Year
  Sex: Female
  Weight: 78.75 kg

DRUGS (2)
  1. HYDROXYCHLOROQUINE 200 MG TAB. GENERIC FOR PLAQUENIL [Suspect]
     Active Substance: HYDROXYCHLOROQUINE
     Indication: RHEUMATOID ARTHRITIS
     Dosage: ?          QUANTITY:2 TABLET(S);?
     Route: 048
     Dates: start: 19980101, end: 20181015
  2. TRAMADOL. [Concomitant]
     Active Substance: TRAMADOL

REACTIONS (4)
  - Impaired driving ability [None]
  - Blindness [None]
  - Retinal disorder [None]
  - Toxicity to various agents [None]

NARRATIVE: CASE EVENT DATE: 20181015
